FAERS Safety Report 20214875 (Version 1)
Quarter: 2021Q4

REPORT INFORMATION
  Report Type: Spontaneous
  Country: DK (occurrence: DK)
  Receive Date: 20211222
  Receipt Date: 20211222
  Transmission Date: 20220303
  Serious: Yes (Hospitalization)
  Sender: FDA-Public Use
  Company Number: None

PATIENT
  Age: 30 Year
  Sex: Female
  Weight: 56 kg

DRUGS (9)
  1. TYSABRI [Suspect]
     Active Substance: NATALIZUMAB
     Indication: Relapsing-remitting multiple sclerosis
     Dosage: STRENGTH: 300 MG
     Route: 065
     Dates: start: 2012, end: 202011
  2. DALFAMPRIDINE [Suspect]
     Active Substance: DALFAMPRIDINE
     Indication: Gait disturbance
     Route: 048
     Dates: start: 2017
  3. MIRABEGRON [Concomitant]
     Active Substance: MIRABEGRON
     Indication: Automatic bladder
     Route: 065
     Dates: start: 2015, end: 2019
  4. MODAFINIL BLUEFISH [Concomitant]
     Indication: Fatigue
     Route: 065
     Dates: start: 2017
  5. DESMOPRESSIN ACETATE [Concomitant]
     Active Substance: DESMOPRESSIN ACETATE
     Indication: Nocturia
     Route: 065
     Dates: start: 2013
  6. NALTREXONE POA PHARMA [Concomitant]
     Indication: Neuralgia
     Route: 065
     Dates: start: 2020
  7. BACLOFEN MEDICAL VALLEY [Concomitant]
     Indication: Muscle spasticity
     Route: 065
     Dates: start: 2015, end: 2020
  8. ZOPICLONE [Concomitant]
     Active Substance: ZOPICLONE
     Indication: Insomnia
     Route: 065
     Dates: start: 2015
  9. VENLAFAXIN 2CARE4 [Concomitant]
     Indication: Depression
     Route: 065
     Dates: start: 2009

REACTIONS (19)
  - Root canal infection [Not Recovered/Not Resolved]
  - Dental caries [Not Recovered/Not Resolved]
  - Oral fungal infection [Not Recovered/Not Resolved]
  - Genital infection fungal [Not Recovered/Not Resolved]
  - Pelvic infection [Recovered/Resolved]
  - Infection susceptibility increased [Recovered/Resolved]
  - Gastrointestinal inflammation [Not Recovered/Not Resolved]
  - Pyelonephritis [Recovered/Resolved]
  - Sepsis [Recovered/Resolved]
  - Contusion [Recovered/Resolved]
  - Gastrointestinal pain [Not Recovered/Not Resolved]
  - Anaemia [Recovered/Resolved]
  - Irritable bowel syndrome [Not Recovered/Not Resolved]
  - Onychomycosis [Not Recovered/Not Resolved]
  - Alopecia [Recovered/Resolved]
  - Mucous stools [Not Recovered/Not Resolved]
  - Cystitis [Recovered/Resolved]
  - Cystitis interstitial [Not Recovered/Not Resolved]
  - Herpes zoster [Not Recovered/Not Resolved]

NARRATIVE: CASE EVENT DATE: 20130101
